FAERS Safety Report 9124883 (Version 1)
Quarter: 2013Q1

REPORT INFORMATION
  Report Type: Report from Study
  Country: US (occurrence: US)
  Receive Date: 20130121
  Receipt Date: 20130121
  Transmission Date: 20140127
  Serious: Yes (Hospitalization)
  Sender: FDA-Public Use
  Company Number: US-VERTEX PHARMACEUTICAL INC.-AE-2012-005322

PATIENT
  Age: 23 Year
  Sex: Male
  Weight: 56.8 kg

DRUGS (16)
  1. VX-770 [Suspect]
     Indication: CYSTIC FIBROSIS
     Dosage: 150 MG
     Route: 048
     Dates: start: 20101129
  2. ALBUTEROL [Concomitant]
     Indication: CYSTIC FIBROSIS LUNG
     Route: 055
  3. ZITHROMAX [Concomitant]
     Indication: CYSTIC FIBROSIS LUNG
  4. PULMICORT [Concomitant]
     Indication: CYSTIC FIBROSIS LUNG
     Route: 055
  5. PULMOZYME [Concomitant]
     Indication: CYSTIC FIBROSIS LUNG
     Route: 055
  6. ATROVENT [Concomitant]
     Indication: CYSTIC FIBROSIS LUNG
     Route: 045
  7. VITAMINS [Concomitant]
     Indication: MALABSORPTION
     Route: 048
  8. CREON [Concomitant]
     Indication: PANCREATIC INSUFFICIENCY
     Route: 048
  9. TAMIFLU [Concomitant]
     Indication: PROPHYLAXIS
     Route: 048
  10. MIRALAX [Concomitant]
     Indication: CONSTIPATION
  11. GLYCOLAX [Concomitant]
     Indication: CONSTIPATION
  12. RANITIDINE [Concomitant]
     Indication: GASTROOESOPHAGEAL REFLUX DISEASE
     Route: 048
  13. FLONASE [Concomitant]
     Indication: CHRONIC SINUSITIS
     Route: 045
  14. BACTRIM DS [Concomitant]
     Indication: CYSTIC FIBROSIS LUNG
     Route: 048
  15. TOBRAMYCIN [Concomitant]
     Indication: BACTERIAL DISEASE CARRIER
     Route: 055
  16. SODIUM CHLORIDE [Concomitant]
     Indication: CHRONIC SINUSITIS
     Route: 045

REACTIONS (1)
  - Infective pulmonary exacerbation of cystic fibrosis [Recovered/Resolved]
